FAERS Safety Report 9826081 (Version 1)
Quarter: 2014Q1

REPORT INFORMATION
  Report Type: Spontaneous
  Country: US (occurrence: None)
  Receive Date: 20140116
  Receipt Date: 20140116
  Transmission Date: 20141002
  Serious: Yes (Other)
  Sender: FDA-Public Use
  Company Number: None

PATIENT
  Age: 5 Year
  Sex: Male
  Weight: 18.14 kg

DRUGS (2)
  1. ABILIFY [Suspect]
     Indication: ATTENTION DEFICIT/HYPERACTIVITY DISORDER
     Dosage: 1` ONCE DAILY AKEN BY MOUTH
     Route: 048
     Dates: start: 20131110, end: 20131113
  2. ABILIFY [Suspect]
     Indication: AUTISM
     Dosage: 1` ONCE DAILY AKEN BY MOUTH
     Route: 048
     Dates: start: 20131110, end: 20131113

REACTIONS (7)
  - Pain [None]
  - Posturing [None]
  - Headache [None]
  - Disorientation [None]
  - Tremor [None]
  - Tardive dyskinesia [None]
  - Neuroleptic malignant syndrome [None]
